FAERS Safety Report 11159405 (Version 1)
Quarter: 2015Q2

REPORT INFORMATION
  Report Type: Spontaneous
  Country: AU (occurrence: AU)
  Receive Date: 20150603
  Receipt Date: 20150603
  Transmission Date: 20150821
  Serious: Yes (Hospitalization)
  Sender: FDA-Public Use
  Company Number: AU-ABBVIE-15P-008-1399771-00

PATIENT
  Age: 9 Year
  Sex: Female

DRUGS (1)
  1. LUCRIN DEPOT [Suspect]
     Active Substance: LEUPROLIDE ACETATE
     Indication: PRECOCIOUS PUBERTY
     Route: 030
     Dates: start: 20150302

REACTIONS (4)
  - Mobility decreased [Unknown]
  - Pain [Unknown]
  - Oedema peripheral [Unknown]
  - Urticaria [Unknown]

NARRATIVE: CASE EVENT DATE: 201505
